FAERS Safety Report 13380167 (Version 1)
Quarter: 2017Q1

REPORT INFORMATION
  Report Type: Spontaneous
  Country: US (occurrence: US)
  Receive Date: 20170328
  Receipt Date: 20170328
  Transmission Date: 20170429
  Serious: No
  Sender: FDA-Public Use
  Company Number: US-TEVA-749430ACC

PATIENT
  Sex: Female

DRUGS (2)
  1. NUVIGIL [Suspect]
     Active Substance: ARMODAFINIL
     Indication: NARCOLEPSY
     Dosage: 1 TABLET BY MOUTH IN THE MORNING AND 1/2 BY MOUTH AT 3.15 P.M
     Route: 048
  2. ALBUTEROL SULFATE INHALER [Concomitant]
     Dosage: 1-2 PUFF, TWICE PER MONTH.
     Route: 048

REACTIONS (5)
  - Contusion [Unknown]
  - Injury [Unknown]
  - Thinking abnormal [Unknown]
  - Somnolence [Unknown]
  - Mood swings [Unknown]
